FAERS Safety Report 4753596-4 (Version None)
Quarter: 2005Q3

REPORT INFORMATION
  Report Type: 
  Country: None (occurrence: None)
  Receive Date: 20050826
  Receipt Date: 20040714
  Transmission Date: 20060218
  Serious: No
  Sender: FDA-Public Use
  Company Number: US-GLAXOSMITHKLINE-A0519143A

PATIENT
  Sex: Female

DRUGS (1)
  1. BECONASE [Suspect]
     Indication: RHINITIS
     Route: 045
     Dates: start: 20040101, end: 20040101

REACTIONS (1)
  - EPISTAXIS [None]
